FAERS Safety Report 8241859-X (Version None)
Quarter: 2012Q1

REPORT INFORMATION
  Report Type: 
  Country: None (occurrence: None)
  Receive Date: 20120328
  Receipt Date: 20120319
  Transmission Date: 20120608
  Serious: Yes (Other)
  Sender: FDA-Public Use
  Company Number: US-ASTRAZENECA-2012SE18583

PATIENT
  Age: 62 Year
  Sex: Female

DRUGS (2)
  1. COPAXONE [Suspect]
     Dates: start: 19970101
  2. ZESTRIL [Suspect]
     Route: 048

REACTIONS (4)
  - COUGH [None]
  - CEREBRAL INFARCTION [None]
  - BLOOD PRESSURE ABNORMAL [None]
  - MULTIPLE SCLEROSIS [None]
